FAERS Safety Report 25352137 (Version 4)
Quarter: 2025Q3

REPORT INFORMATION
  Report Type: Spontaneous
  Country: RS (occurrence: RS)
  Receive Date: 20250523
  Receipt Date: 20250803
  Transmission Date: 20251020
  Serious: Yes (Hospitalization, Other)
  Sender: ALEXION PHARMACEUTICALS
  Company Number: RS-ASTRAZENECA-202505BKN013886RS

PATIENT

DRUGS (3)
  1. SYMBICORT [Suspect]
     Active Substance: BUDESONIDE\FORMOTEROL FUMARATE DIHYDRATE
     Indication: Asthma
     Route: 065
  2. BECLOMETHASONE [Suspect]
     Active Substance: BECLOMETHASONE
     Route: 065
  3. LEVOFLOXACIN [Suspect]
     Active Substance: LEVOFLOXACIN
     Route: 065

REACTIONS (7)
  - Asthma [Not Recovered/Not Resolved]
  - COVID-19 pneumonia [Unknown]
  - COVID-19 [Not Recovered/Not Resolved]
  - Diabetes mellitus [Unknown]
  - Chronic sinusitis [Unknown]
  - Dermatitis allergic [Unknown]
  - Hypertension [Unknown]

NARRATIVE: CASE EVENT DATE: 20210401
